FAERS Safety Report 23406766 (Version 1)
Quarter: 2024Q1

REPORT INFORMATION
  Report Type: Report from Study
  Country: CA (occurrence: CA)
  Receive Date: 20240116
  Receipt Date: 20240116
  Transmission Date: 20240409
  Serious: Yes (Hospitalization)
  Sender: FDA-Public Use
  Company Number: CA-AMGEN-CANSL2022033328

PATIENT
  Age: 83 Year
  Sex: Male

DRUGS (1)
  1. AVSOLA [Suspect]
     Active Substance: INFLIXIMAB-AXXQ
     Indication: Spondylitis
     Dosage: 3 MILLIGRAM/KILOGRAM, Q6WK
     Route: 065
     Dates: start: 20220405

REACTIONS (2)
  - Pneumonia aspiration [Recovered/Resolved]
  - Off label use [Unknown]
